FAERS Safety Report 5282623-3 (Version None)
Quarter: 2007Q1

REPORT INFORMATION
  Report Type: 
  Country: None (occurrence: None)
  Receive Date: 20070331
  Receipt Date: 20070319
  Transmission Date: 20070707
  Serious: Yes (Hospitalization)
  Sender: FDA-Public Use
  Company Number: US-SHR-US-2007-005464

PATIENT
  Age: 78 Year
  Sex: Male

DRUGS (10)
  1. LEUKINE [Suspect]
     Indication: METASTATIC MALIGNANT MELANOMA
     Dosage: 125MCG/M2/D, DAYS 8-21
     Route: 058
     Dates: start: 20070118, end: 20070131
  2. TEMOZOLOMIDE [Suspect]
     Indication: METASTATIC MALIGNANT MELANOMA
     Dosage: 200 MG/M2 DAYS 1-5
     Route: 048
     Dates: start: 20070111, end: 20070115
  3. TEMOZOLOMIDE [Suspect]
     Dosage: 350 MG DAILY
     Route: 048
     Dates: start: 20070201
  4. INTERLEUKIN-2 [Suspect]
     Indication: METASTATIC MALIGNANT MELANOMA
     Dosage: 600,000IU/KG
     Route: 042
     Dates: start: 20061113, end: 20061117
  5. INTERLEUKIN-2 [Suspect]
     Dates: start: 20061211, end: 20061215
  6. DIGOXIN [Concomitant]
     Dosage: .125 MG, 1X/DAY
     Route: 048
  7. PRILOSEC [Concomitant]
     Dosage: 20 MG, 2X/DAY
     Route: 048
  8. ATORVASTATIN CALCIUM [Concomitant]
     Dosage: 10 MG, 1X/DAY
     Route: 048
  9. FOLATE SODIUM [Concomitant]
     Dosage: 1 MG, 1X/DAY
     Route: 048
  10. CARAFATE [Concomitant]
     Dosage: 1 G, 3X/DAY
     Route: 048

REACTIONS (1)
  - MALIGNANT NEOPLASM PROGRESSION [None]
